FAERS Safety Report 7679778-X (Version None)
Quarter: 2011Q3

REPORT INFORMATION
  Report Type: 
  Country: None (occurrence: None)
  Receive Date: 20110812
  Receipt Date: 20110808
  Transmission Date: 20111222
  Serious: Yes (Death, Other)
  Sender: FDA-Public Use
  Company Number: FR-JNJFOC-20110804150

PATIENT
  Age: 78 Year
  Sex: Female

DRUGS (14)
  1. TRANDATE [Concomitant]
     Route: 065
  2. XYLOCAINE [Concomitant]
     Route: 065
     Dates: start: 20110702
  3. INDOCOLLYRE [Concomitant]
     Route: 065
     Dates: start: 20110629
  4. VANCOMYCIN [Concomitant]
     Route: 065
     Dates: start: 20110702
  5. CEFTAZIDIME [Concomitant]
     Route: 065
     Dates: start: 20110702
  6. MAXIDROL [Concomitant]
     Route: 065
     Dates: start: 20110629
  7. ACETAMINOPHEN AND TRAMADOL HCL [Concomitant]
     Route: 065
  8. EUPRESSYL [Concomitant]
     Route: 065
  9. LASIX [Concomitant]
     Route: 065
  10. TETRACAINE POLYGYL STERILE OPHTHALMIC SOLUTION [Concomitant]
     Route: 065
     Dates: start: 20110702
  11. RAMIPRIL [Concomitant]
     Route: 065
  12. LEVOFLOXACIN [Suspect]
     Indication: PRODUCT USED FOR UNKNOWN INDICATION
     Route: 042
     Dates: start: 20110702
  13. INSULATARD INSULIN [Concomitant]
     Route: 065
  14. LERCANIDIPINE [Concomitant]
     Route: 065

REACTIONS (2)
  - CYANOSIS [None]
  - SUDDEN DEATH [None]
